FAERS Safety Report 26108204 (Version 1)
Quarter: 2025Q4

REPORT INFORMATION
  Report Type: Report from Study
  Country: US (occurrence: US)
  Receive Date: 20251201
  Receipt Date: 20251201
  Transmission Date: 20260119
  Serious: Yes (Other)
  Sender: DAIICHI
  Company Number: US-AstraZeneca-CH-00997177A

PATIENT
  Sex: Female

DRUGS (1)
  1. ENHERTU [Suspect]
     Active Substance: FAM-TRASTUZUMAB DERUXTECAN-NXKI
     Indication: HER2 positive ovarian cancer
     Dosage: UNK
     Route: 042

REACTIONS (1)
  - Cytopenia [Unknown]
